FAERS Safety Report 24808046 (Version 2)
Quarter: 2025Q3

REPORT INFORMATION
  Report Type: Report from Study
  Country: IN (occurrence: IN)
  Receive Date: 20250106
  Receipt Date: 20250803
  Transmission Date: 20251020
  Serious: Yes (Other)
  Sender: ALEXION PHARMACEUTICALS
  Company Number: IN-AstraZeneca-CH-00776846A

PATIENT
  Sex: Female
  Weight: 67 kg

DRUGS (2)
  1. LYNPARZA [Suspect]
     Active Substance: OLAPARIB
  2. TRASTUZUMAB DERUXTECAN [Suspect]
     Active Substance: TRASTUZUMAB DERUXTECAN
     Indication: Human epidermal growth factor receptor negative
     Dosage: 300 MILLIGRAM, TID

REACTIONS (3)
  - Breast cancer metastatic [Unknown]
  - Human epidermal growth factor receptor negative [Unknown]
  - Weight decreased [Unknown]
